FAERS Safety Report 22724645 (Version 3)
Quarter: 2023Q4

REPORT INFORMATION
  Report Type: Spontaneous
  Country: CH (occurrence: CH)
  Receive Date: 20230719
  Receipt Date: 20231222
  Transmission Date: 20240110
  Serious: Yes (Hospitalization, Other)
  Sender: FDA-Public Use
  Company Number: CH-SUN PHARMACEUTICAL INDUSTRIES LTD-2023RR-393797

PATIENT
  Age: 52 Year
  Sex: Female
  Weight: 95 kg

DRUGS (7)
  1. TILDRAKIZUMAB [Suspect]
     Active Substance: TILDRAKIZUMAB
     Indication: Psoriasis
     Dosage: 100 MILLIGRAM, EVERY 12 WEEKS
     Route: 058
     Dates: start: 20200722, end: 20230215
  2. BRYOPHYLLUM [Concomitant]
     Indication: Product used for unknown indication
     Dosage: UNK
     Route: 065
  3. GOSERELIN [Concomitant]
     Active Substance: GOSERELIN
     Indication: Product used for unknown indication
     Dosage: 10.8 MILLIGRAM, UNK
     Route: 003
  4. Epirubicin/cyclophosphamide [Concomitant]
     Indication: Product used for unknown indication
     Dosage: UNK
     Route: 065
  5. PACLITAXEL [Concomitant]
     Active Substance: PACLITAXEL
     Indication: Product used for unknown indication
     Dosage: 80 MILLIGRAM, WEEKLY
     Route: 065
  6. PACLITAXEL [Concomitant]
     Active Substance: PACLITAXEL
     Dosage: 175 MG/M2 X 4 AT 3-WEEK INTERVALS
     Route: 065
  7. COSENTYX [Suspect]
     Active Substance: SECUKINUMAB
     Indication: Product used for unknown indication
     Dosage: 300 MILLIGRAM, UNK
     Route: 058
     Dates: start: 20180502, end: 20200515

REACTIONS (3)
  - Breast cancer [Recovered/Resolved]
  - Breast conserving surgery [Recovered/Resolved]
  - Biopsy lymph gland [Recovered/Resolved]

NARRATIVE: CASE EVENT DATE: 20230522
